FAERS Safety Report 9305653 (Version 1)
Quarter: 2013Q2

REPORT INFORMATION
  Report Type: Spontaneous
  Country: US (occurrence: None)
  Receive Date: 20130522
  Receipt Date: 20130522
  Transmission Date: 20140414
  Serious: Yes (Other)
  Sender: FDA-Public Use
  Company Number: None

PATIENT
  Age: 32 Year
  Sex: Female
  Weight: 63.5 kg

DRUGS (1)
  1. METRONIDAZOLE [Suspect]
     Indication: VAGINITIS BACTERIAL
     Dosage: 1 TABLET, TWICE A DAY, PO
     Route: 048
     Dates: start: 20130521, end: 20130521

REACTIONS (13)
  - Serotonin syndrome [None]
  - Vision blurred [None]
  - Confusional state [None]
  - Dizziness [None]
  - Hypoaesthesia [None]
  - Paraesthesia [None]
  - Back pain [None]
  - Arthralgia [None]
  - Dysarthria [None]
  - Agitation [None]
  - Abdominal pain [None]
  - Hyperhidrosis [None]
  - Hypersensitivity [None]
